FAERS Safety Report 19987954 (Version 1)
Quarter: 2021Q4

REPORT INFORMATION
  Report Type: Spontaneous
  Country: RO (occurrence: RO)
  Receive Date: 20211023
  Receipt Date: 20211023
  Transmission Date: 20220303
  Serious: Yes (Other)
  Sender: FDA-Public Use
  Company Number: RO-AMGEN-ROUSP2021159663

PATIENT
  Age: 50 Year
  Sex: Male

DRUGS (5)
  1. VECTIBIX [Suspect]
     Active Substance: PANITUMUMAB
     Indication: Adenocarcinoma of colon
     Dosage: UNK, CYCLICAL
     Route: 065
     Dates: start: 201802, end: 202005
  2. CAPECITABINE [Concomitant]
     Active Substance: CAPECITABINE
     Indication: Adenocarcinoma of colon
     Dosage: 825 MILLIGRAM, BID
     Route: 048
     Dates: start: 2018
  3. LEUCOVORIN [Concomitant]
     Active Substance: LEUCOVORIN
     Indication: Adenocarcinoma of colon
     Dosage: UNK UNK, CYCLICAL
     Dates: start: 201802, end: 20191009
  4. FLUOROURACIL [Concomitant]
     Active Substance: FLUOROURACIL
     Indication: Adenocarcinoma of colon
     Dosage: UNK UNK, CYCLICAL
     Dates: start: 201802, end: 20191009
  5. OXALIPLATIN [Concomitant]
     Active Substance: OXALIPLATIN
     Indication: Adenocarcinoma of colon
     Dosage: UNK UNK, CYCLICAL
     Dates: start: 201802, end: 20191009

REACTIONS (6)
  - Adenocarcinoma of colon [Unknown]
  - Liver abscess [Unknown]
  - Postoperative abscess [Unknown]
  - Post procedural infection [Unknown]
  - Pleurisy [Unknown]
  - Off label use [Unknown]

NARRATIVE: CASE EVENT DATE: 20180101
